FAERS Safety Report 5196456-X (Version None)
Quarter: 2006Q4

REPORT INFORMATION
  Report Type: 
  Country: None (occurrence: None)
  Receive Date: 20061227
  Receipt Date: 20061207
  Transmission Date: 20070319
  Serious: Yes (Life-Threatening, Hospitalization, Disabling)
  Sender: FDA-Public Use
  Company Number: 150854ISR

PATIENT
  Age: 39 Year
  Sex: Male

DRUGS (2)
  1. CITALOPRAM HYDROBROMIDE [Suspect]
     Indication: DEPRESSION
     Dosage: (40 MG)
     Route: 048
  2. CLOZAPINE [Suspect]
     Indication: SCHIZOPHRENIA
     Dosage: 400 MG (400 MG, 1 IN 1 D)
     Route: 048
     Dates: start: 20020101

REACTIONS (2)
  - DIABETES MELLITUS INSULIN-DEPENDENT [None]
  - DIABETIC KETOACIDOSIS [None]
